FAERS Safety Report 9019069 (Version 1)
Quarter: 2013Q1

REPORT INFORMATION
  Report Type: Report from Study
  Country: NL (occurrence: NL)
  Receive Date: 20130118
  Receipt Date: 20130118
  Transmission Date: 20140127
  Serious: Yes (Hospitalization)
  Sender: FDA-Public Use
  Company Number: NL-ABBOTT-13P-114-1034015-00

PATIENT
  Age: 48 Year
  Sex: Female
  Weight: 61 kg

DRUGS (4)
  1. HUMIRA [Suspect]
     Indication: PSORIASIS
     Route: 058
     Dates: start: 20120601, end: 20130106
  2. PANADOL [Concomitant]
     Indication: OSTEOARTHRITIS
     Route: 048
  3. QVAR [Concomitant]
     Indication: BRONCHITIS CHRONIC
     Route: 045
  4. FLIXONASE NASULE [Concomitant]
     Indication: BRONCHITIS CHRONIC
     Route: 045

REACTIONS (3)
  - Pyrexia [Not Recovered/Not Resolved]
  - Appendicitis [Recovered/Resolved]
  - Abdominal pain lower [Recovered/Resolved]
